FAERS Safety Report 19349797 (Version 1)
Quarter: 2021Q2

REPORT INFORMATION
  Report Type: Spontaneous
  Country: FR (occurrence: FR)
  Receive Date: 20210531
  Receipt Date: 20210531
  Transmission Date: 20210717
  Serious: Yes (Other)
  Sender: FDA-Public Use
  Company Number: FR-TEVA-2021-FR-1915792

PATIENT
  Age: 58 Year
  Sex: Male
  Weight: 83 kg

DRUGS (1)
  1. OXALIPLATINE [Suspect]
     Active Substance: OXALIPLATIN
     Indication: COLORECTAL CANCER METASTATIC
     Dosage: AT 11:10 AM, 240MG
     Route: 042
     Dates: start: 20201222, end: 20201222

REACTIONS (1)
  - Type I hypersensitivity [Recovered/Resolved]

NARRATIVE: CASE EVENT DATE: 20201222
